FAERS Safety Report 7755141-8 (Version None)
Quarter: 2011Q3

REPORT INFORMATION
  Report Type: 
  Country: None (occurrence: None)
  Receive Date: 20110916
  Receipt Date: 20110913
  Transmission Date: 20111222
  Serious: No
  Sender: FDA-Public Use
  Company Number: US-PFIZER INC-2011217165

PATIENT
  Sex: Female
  Weight: 83.9 kg

DRUGS (6)
  1. AMLODIPINE BESYLATE [Suspect]
     Dosage: 10 MG, 2X/DAY
     Route: 048
     Dates: end: 20110101
  2. ATIVAN [Concomitant]
     Indication: BLOOD PRESSURE ABNORMAL
  3. INNOPRAN XL [Concomitant]
     Indication: PALPITATIONS
     Dosage: 120 MG, 2X/DAY
     Route: 048
  4. AMLODIPINE BESYLATE [Suspect]
     Indication: HYPERTENSION
     Dosage: 2.5 MG, 2X/DAY
     Route: 048
  5. TYLENOL-500 [Concomitant]
     Indication: PAIN
     Dosage: 500 MG, AS NEEDED
  6. ATIVAN [Concomitant]
     Indication: ANXIETY
     Dosage: UNK

REACTIONS (2)
  - DIZZINESS [None]
  - VERTIGO [None]
